FAERS Safety Report 13952809 (Version 1)
Quarter: 2017Q3

REPORT INFORMATION
  Report Type: Spontaneous
  Country: US (occurrence: US)
  Receive Date: 20170911
  Receipt Date: 20170911
  Transmission Date: 20171128
  Serious: No
  Sender: FDA-Public Use
  Company Number: US-TEVA-751434ACC

PATIENT
  Age: 50 Year
  Sex: Male

DRUGS (1)
  1. FENTANYL WATSON [Suspect]
     Active Substance: FENTANYL
     Indication: PRODUCT USED FOR UNKNOWN INDICATION
     Route: 065

REACTIONS (5)
  - Decreased appetite [Unknown]
  - Withdrawal syndrome [None]
  - Formication [Unknown]
  - Drug ineffective [Unknown]
  - Hyperhidrosis [Unknown]
